FAERS Safety Report 17988436 (Version 1)
Quarter: 2020Q3

REPORT INFORMATION
  Report Type: Spontaneous
  Country: US (occurrence: US)
  Receive Date: 20200706
  Receipt Date: 20200706
  Transmission Date: 20201103
  Serious: No
  Sender: FDA-Public Use
  Company Number: None

PATIENT
  Age: 9 Month
  Sex: Male
  Weight: 7.43 kg

DRUGS (1)
  1. BABYGANICS SPF 50 PLUS SUNSCREEN [Suspect]
     Active Substance: OCTISALATE\OCTOCRYLENE\ZINC OXIDE
     Route: 061

REACTIONS (2)
  - Sunscreen sensitivity [None]
  - Application site rash [None]

NARRATIVE: CASE EVENT DATE: 20200622
